FAERS Safety Report 8385870-7 (Version None)
Quarter: 2012Q2

REPORT INFORMATION
  Report Type: 
  Country: None (occurrence: None)
  Receive Date: 20120525
  Receipt Date: 20120521
  Transmission Date: 20120825
  Serious: Yes (Hospitalization)
  Sender: FDA-Public Use
  Company Number: BR-US-EMD SERONO, INC.-7031391

PATIENT
  Sex: Female

DRUGS (5)
  1. REBIF [Suspect]
     Route: 058
     Dates: start: 20110102
  2. PAMELOR [Concomitant]
     Indication: PRODUCT USED FOR UNKNOWN INDICATION
  3. CLONAZEPAM [Concomitant]
     Indication: PRODUCT USED FOR UNKNOWN INDICATION
  4. REBIF [Suspect]
     Indication: RELAPSING-REMITTING MULTIPLE SCLEROSIS
     Dates: start: 20080404
  5. MANTIDAN [Concomitant]
     Indication: PRODUCT USED FOR UNKNOWN INDICATION

REACTIONS (12)
  - FEELING COLD [None]
  - MALAISE [None]
  - BURNING SENSATION [None]
  - MOOD ALTERED [None]
  - INSOMNIA [None]
  - DYSSTASIA [None]
  - NAUSEA [None]
  - DIZZINESS [None]
  - VOMITING [None]
  - VISUAL ACUITY REDUCED [None]
  - ASTHENIA [None]
  - FATIGUE [None]
